FAERS Safety Report 14933793 (Version 1)
Quarter: 2018Q2

REPORT INFORMATION
  Report Type: Spontaneous
  Country: US (occurrence: US)
  Receive Date: 20180524
  Receipt Date: 20180524
  Transmission Date: 20180711
  Serious: No
  Sender: FDA-Public Use
  Company Number: US-TARO-2017TAR00419

PATIENT
  Age: 2 Year
  Sex: Male

DRUGS (2)
  1. FEVERALL INFANTS [Suspect]
     Active Substance: ACETAMINOPHEN
     Dosage: 1 SUPPOSITORY, EVERY 4 HOURS
     Route: 054
     Dates: start: 20170527, end: 20170527
  2. FEVERALL INFANTS [Suspect]
     Active Substance: ACETAMINOPHEN
     Indication: PYREXIA
     Dosage: 1.5 SUPPOSITORIES, ONCE
     Route: 054
     Dates: start: 20170528, end: 20170528

REACTIONS (5)
  - Overdose [Unknown]
  - Vomiting [Unknown]
  - Fear [Unknown]
  - Malaise [Unknown]
  - Drug ineffective [Unknown]

NARRATIVE: CASE EVENT DATE: 20170527
